FAERS Safety Report 6135361-9 (Version None)
Quarter: 2009Q1

REPORT INFORMATION
  Report Type: 
  Country: None (occurrence: None)
  Receive Date: 20090327
  Receipt Date: 20090320
  Transmission Date: 20090719
  Serious: Yes (Other)
  Sender: FDA-Public Use
  Company Number: US-ASTRAZENECA-2009UW07663

PATIENT
  Age: 22961 Day
  Sex: Female

DRUGS (1)
  1. CRESTOR [Suspect]
     Route: 048

REACTIONS (7)
  - ARTHRITIS [None]
  - BACK PAIN [None]
  - DEPRESSION [None]
  - HYPOAESTHESIA [None]
  - MUSCULAR WEAKNESS [None]
  - MYOCARDIAL INFARCTION [None]
  - OSTEOARTHRITIS [None]
